FAERS Safety Report 23153125 (Version 1)
Quarter: 2023Q4

REPORT INFORMATION
  Report Type: Spontaneous
  Country: US (occurrence: US)
  Receive Date: 20231107
  Receipt Date: 20231107
  Transmission Date: 20240109
  Serious: No
  Sender: FDA-Public Use
  Company Number: US-BEH-2023165063

PATIENT
  Sex: Female

DRUGS (3)
  1. ZEMAIRA [Suspect]
     Active Substance: .ALPHA.1-PROTEINASE INHIBITOR HUMAN
     Dosage: 4266 MILLIGRAM, QW
     Route: 065
     Dates: start: 202002
  2. ZEMAIRA [Suspect]
     Active Substance: .ALPHA.1-PROTEINASE INHIBITOR HUMAN
     Dosage: 4905 MILLIGRAM, QW
     Route: 065
     Dates: start: 202304
  3. ZEMAIRA [Suspect]
     Active Substance: .ALPHA.1-PROTEINASE INHIBITOR HUMAN
     Dosage: 3923 MILLIGRAM
     Route: 065
     Dates: start: 2023

REACTIONS (3)
  - Weight fluctuation [Unknown]
  - No adverse event [Unknown]
  - Incorrect dose administered [Unknown]
